FAERS Safety Report 7070869-3 (Version None)
Quarter: 2010Q4

REPORT INFORMATION
  Report Type: 
  Country: None (occurrence: None)
  Receive Date: 20101029
  Receipt Date: 20101014
  Transmission Date: 20110411
  Serious: Yes (Other)
  Sender: FDA-Public Use
  Company Number: PHHY2010US69461

PATIENT
  Sex: Female

DRUGS (4)
  1. RECLAST [Suspect]
  2. RECLAST [Suspect]
  3. ACTONEL [Suspect]
  4. FOSAMAX [Suspect]

REACTIONS (3)
  - DYSPEPSIA [None]
  - HIP ARTHROPLASTY [None]
  - OESOPHAGEAL DISORDER [None]
